FAERS Safety Report 23715983 (Version 1)
Quarter: 2024Q2

REPORT INFORMATION
  Report Type: Spontaneous
  Country: NL (occurrence: NL)
  Receive Date: 20240408
  Receipt Date: 20240408
  Transmission Date: 20240715
  Serious: Yes (Other)
  Sender: FDA-Public Use
  Company Number: None

PATIENT
  Age: 79 Year
  Sex: Male
  Weight: 70 kg

DRUGS (2)
  1. SERTRALINE [Suspect]
     Active Substance: SERTRALINE HYDROCHLORIDE
     Indication: Claustrophobia
     Dosage: STRENGTH: 50 MG, 1X PER DAY 1 PIECE
     Dates: start: 19830727, end: 202210
  2. TETRABENAZINE [Concomitant]
     Active Substance: TETRABENAZINE
     Dosage: STRENGTH: 1 MG
     Dates: start: 202210

REACTIONS (1)
  - Tardive dyskinesia [Not Recovered/Not Resolved]
